FAERS Safety Report 23343298 (Version 1)
Quarter: 2023Q4

REPORT INFORMATION
  Report Type: Spontaneous
  Country: CZ (occurrence: CZ)
  Receive Date: 20231227
  Receipt Date: 20231227
  Transmission Date: 20240110
  Serious: Yes (Other)
  Sender: FDA-Public Use
  Company Number: None

PATIENT
  Age: 56 Year
  Sex: Female
  Weight: 65 kg

DRUGS (1)
  1. RIMEGEPANT [Suspect]
     Active Substance: RIMEGEPANT
     Indication: Migraine prophylaxis
     Dosage: 1 TABLET EVERY SECOND DAY
     Route: 048
     Dates: start: 20231115, end: 20231126

REACTIONS (3)
  - Breast engorgement [Recovering/Resolving]
  - Telangiectasia [Recovering/Resolving]
  - Hyphaema [Recovering/Resolving]

NARRATIVE: CASE EVENT DATE: 20231126
